FAERS Safety Report 8787719 (Version 1)
Quarter: 2012Q4

REPORT INFORMATION
  Report Type: Report from Study
  Country: US (occurrence: US)
  Receive Date: 20120914
  Receipt Date: 20120914
  Transmission Date: 20130627
  Serious: No
  Sender: FDA-Public Use
  Company Number: US-VERTEX PHARMACEUTICAL INC.-AE-2012-008872

PATIENT
  Sex: Female
  Weight: 87.73 kg

DRUGS (3)
  1. INCIVEK [Suspect]
     Indication: HEPATITIS C
     Route: 048
  2. PEGASYS [Concomitant]
     Indication: HEPATITIS C
     Route: 058
     Dates: start: 20120507
  3. RIBASPHERE [Concomitant]
     Indication: HEPATITIS C
     Dates: start: 20120507

REACTIONS (1)
  - Rash generalised [Unknown]
